FAERS Safety Report 16986235 (Version 3)
Quarter: 2020Q1

REPORT INFORMATION
  Report Type: Spontaneous
  Country: US (occurrence: US)
  Receive Date: 20191101
  Receipt Date: 20200127
  Transmission Date: 20200409
  Serious: Yes (Other)
  Sender: FDA-Public Use
  Company Number: US-ELI_LILLY_AND_COMPANY-US201910015270

PATIENT
  Age: 74 Year
  Sex: Female
  Weight: 52 kg

DRUGS (4)
  1. XARELTO [Suspect]
     Active Substance: RIVAROXABAN
     Indication: PRODUCT USED FOR UNKNOWN INDICATION
     Dosage: UNK, UNKNOWN
     Route: 065
  2. CYMBALTA [Suspect]
     Active Substance: DULOXETINE HYDROCHLORIDE
     Indication: CARDIAC DISORDER
     Dosage: UNK, UNKNOWN
     Route: 065
  3. LYRICA [Suspect]
     Active Substance: PREGABALIN
     Indication: CARDIAC DISORDER
     Dosage: UNK, UNKNOWN
     Route: 065
  4. VYNDAQEL [Concomitant]
     Active Substance: TAFAMIDIS MEGLUMINE
     Indication: CARDIAC DISORDER

REACTIONS (4)
  - Myocardial infarction [Unknown]
  - Drug hypersensitivity [Unknown]
  - Dyspnoea [Unknown]
  - Blood pressure increased [Unknown]

NARRATIVE: CASE EVENT DATE: 2017
